FAERS Safety Report 7281608 (Version 4)
Quarter: 2012Q4

REPORT INFORMATION
  Report Type: 
  Country: US (occurrence: US)
  Receive Date: 20100217
  Receipt Date: 20121019
  Transmission Date: 20130627
  Serious: Yes (Hospitalization, Other)
  Sender: FDA-Public Use
  Company Number: US-ELI_LILLY_AND_COMPANY-US201002003771

PATIENT
  Age: 61 None
  Sex: Female
  Weight: 142.86 kg

DRUGS (8)
  1. BYETTA [Suspect]
     Dosage: 5 ug, bid
     Route: 058
     Dates: start: 20080110, end: 20090716
  2. BYETTA [Suspect]
     Dosage: 10 ug, bid
     Route: 058
  3. LANTUS [Concomitant]
     Indication: DIABETES MELLITUS
     Dosage: 50 u, bid
     Route: 058
  4. LASIX [Concomitant]
     Indication: CARDIAC FAILURE CONGESTIVE
     Dosage: 40 mg, bid
     Route: 048
  5. TYLENOL                                 /SCH/ [Concomitant]
     Indication: HEADACHE
  6. LEVOTHYROXIN [Concomitant]
     Dosage: 0.125 mg, qd
     Route: 048
  7. ENALAPRIL [Concomitant]
     Dosage: 20 mg, bid
     Route: 048
  8. LIPITOR [Concomitant]
     Dosage: 10 mg, qd
     Route: 048

REACTIONS (6)
  - Pancreatitis [Recovered/Resolved]
  - Renal failure [Recovered/Resolved]
  - Renal failure acute [Recovering/Resolving]
  - Clostridium difficile infection [Recovered/Resolved]
  - Gastric disorder [Not Recovered/Not Resolved]
  - Off label use [Unknown]
